FAERS Safety Report 10053866 (Version 1)
Quarter: 2014Q2

REPORT INFORMATION
  Report Type: Spontaneous
  Country: US (occurrence: US)
  Receive Date: 20140402
  Receipt Date: 20140402
  Transmission Date: 20141212
  Serious: No
  Sender: FDA-Public Use
  Company Number: US-AMGEN-USASP2014015310

PATIENT
  Age: 47 Year
  Sex: Female

DRUGS (1)
  1. ENBREL [Suspect]
     Indication: RHEUMATOID ARTHRITIS
     Dosage: 50 MG, Q2WK
     Route: 065
     Dates: start: 20140103

REACTIONS (5)
  - Extra dose administered [Recovered/Resolved]
  - Dysgeusia [Recovered/Resolved]
  - Influenza like illness [Recovered/Resolved]
  - Back pain [Not Recovered/Not Resolved]
  - Nasopharyngitis [Recovered/Resolved]
